FAERS Safety Report 7494217-X (Version None)
Quarter: 2011Q2

REPORT INFORMATION
  Report Type: 
  Country: None (occurrence: None)
  Receive Date: 20110520
  Receipt Date: 20101221
  Transmission Date: 20111010
  Serious: Yes (Hospitalization)
  Sender: FDA-Public Use
  Company Number: US-BAYER-201036378NA

PATIENT
  Age: 37 Year
  Sex: Female
  Weight: 68.481 kg

DRUGS (4)
  1. ATIVAN [Concomitant]
  2. YAZ [Suspect]
     Indication: CONTRACEPTION
     Dosage: UNK
     Route: 048
     Dates: start: 20080606, end: 20081028
  3. MULTI-VITAMIN [Concomitant]
  4. YAZ [Suspect]
     Indication: PREMENSTRUAL SYNDROME

REACTIONS (2)
  - PULMONARY EMBOLISM [None]
  - PULMONARY HYPERTENSION [None]
